FAERS Safety Report 7701470-3 (Version None)
Quarter: 2011Q3

REPORT INFORMATION
  Report Type: 
  Country: None (occurrence: None)
  Receive Date: 20110822
  Receipt Date: 20110817
  Transmission Date: 20111222
  Serious: Yes (Hospitalization, Other)
  Sender: FDA-Public Use
  Company Number: US-PFIZER INC-2011189552

PATIENT
  Age: 24 Year
  Sex: Male

DRUGS (1)
  1. ZOLOFT [Suspect]
     Dosage: UNK

REACTIONS (6)
  - TREMOR [None]
  - MENISCUS LESION [None]
  - CONVULSION [None]
  - BLOOD POTASSIUM DECREASED [None]
  - CIRCULATORY COLLAPSE [None]
  - ENCEPHALITIC INFECTION [None]
